FAERS Safety Report 17386390 (Version 2)
Quarter: 2020Q1

REPORT INFORMATION
  Report Type: Spontaneous
  Country: US (occurrence: US)
  Receive Date: 20200206
  Receipt Date: 20200210
  Transmission Date: 20200409
  Serious: No
  Sender: FDA-Public Use
  Company Number: US-STRONGBRIDGE BIOPHARMA-2020-STR-000023

PATIENT
  Age: 39 Year
  Sex: Male

DRUGS (1)
  1. KEVEYIS [Suspect]
     Active Substance: DICHLORPHENAMIDE
     Indication: FAMILIAL PERIODIC PARALYSIS
     Dosage: 50 MG, BID
     Route: 048
     Dates: start: 20191228

REACTIONS (13)
  - Paraesthesia [Recovering/Resolving]
  - Flatulence [Unknown]
  - Diarrhoea [Unknown]
  - Nausea [Recovering/Resolving]
  - Abdominal distension [Unknown]
  - Chills [Recovering/Resolving]
  - Herpes zoster [Recovering/Resolving]
  - Hyperchlorhydria [Unknown]
  - Pyrexia [Recovering/Resolving]
  - Vomiting [Recovering/Resolving]
  - Bronchitis [Recovering/Resolving]
  - Influenza like illness [Recovering/Resolving]
  - Diarrhoea [Recovering/Resolving]

NARRATIVE: CASE EVENT DATE: 20200113
